FAERS Safety Report 16710479 (Version 1)
Quarter: 2019Q4

REPORT INFORMATION
  Report Type: Spontaneous
  Country: US (occurrence: US)
  Receive Date: 20190815
  Receipt Date: 20190815
  Transmission Date: 20200122
  Serious: Yes (Life-Threatening, Hospitalization, Disabling, Other)
  Sender: FDA-Public Use
  Company Number: None

PATIENT
  Age: 34 Year
  Sex: Male
  Weight: 72 kg

DRUGS (4)
  1. C IPRO FLAXEN 500MG [Suspect]
     Active Substance: CIPROFLOXACIN
     Indication: PROSTATITIS
     Dosage: ?          QUANTITY:28 TABLET(S);?
     Route: 048
     Dates: start: 20190514, end: 20190603
  2. MAGNESIUM SPRAY [Concomitant]
  3. TURMERIC [Concomitant]
     Active Substance: HERBALS\TURMERIC
  4. LYRICA [Concomitant]
     Active Substance: PREGABALIN

REACTIONS (10)
  - Musculoskeletal disorder [None]
  - Pain in extremity [None]
  - Headache [None]
  - Pain [None]
  - Gait inability [None]
  - Neuralgia [None]
  - Impaired work ability [None]
  - Impaired driving ability [None]
  - Tendon disorder [None]
  - Eye pain [None]

NARRATIVE: CASE EVENT DATE: 20190514
